FAERS Safety Report 17467523 (Version 1)
Quarter: 2020Q1

REPORT INFORMATION
  Report Type: Spontaneous
  Country: FR (occurrence: FR)
  Receive Date: 20200227
  Receipt Date: 20200227
  Transmission Date: 20200409
  Serious: Yes (Other)
  Sender: FDA-Public Use
  Company Number: FR-PFIZER INC-2020078166

PATIENT
  Age: 66 Year
  Sex: Male

DRUGS (4)
  1. PAMIDRONATE DISODIUM. [Suspect]
     Active Substance: PAMIDRONATE DISODIUM
     Indication: CONDITION AGGRAVATED
  2. USTEKINUMAB [Concomitant]
     Active Substance: USTEKINUMAB
     Indication: SAPHO SYNDROME
     Dosage: UNK
  3. PAMIDRONATE DISODIUM. [Suspect]
     Active Substance: PAMIDRONATE DISODIUM
     Indication: SAPHO SYNDROME
     Dosage: UNK (INFUSIONS)
     Route: 042
     Dates: start: 201904
  4. SALAZOPYRINE [Concomitant]
     Active Substance: SULFASALAZINE
     Indication: SAPHO SYNDROME
     Dosage: UNK

REACTIONS (5)
  - Subclavian vein thrombosis [Recovering/Resolving]
  - Off label use [Unknown]
  - Deep vein thrombosis [Recovering/Resolving]
  - Product use in unapproved indication [Unknown]
  - Brachiocephalic vein thrombosis [Recovering/Resolving]

NARRATIVE: CASE EVENT DATE: 201904
